FAERS Safety Report 9208093 (Version 1)
Quarter: 2013Q2

REPORT INFORMATION
  Report Type: Spontaneous
  Country: GB (occurrence: GB)
  Receive Date: 20130403
  Receipt Date: 20130403
  Transmission Date: 20140414
  Serious: Yes (Other)
  Sender: FDA-Public Use
  Company Number: PHHY2013GB029913

PATIENT
  Age: 60 Year
  Sex: Female

DRUGS (10)
  1. SERTRALINE [Suspect]
     Dosage: 2 DF, QD
  2. AMLODIPINE [Suspect]
     Dosage: 1 DF, QD
  3. DIAZEPAM [Suspect]
  4. VENTOLIN [Suspect]
     Dosage: 100 UG, UNK
  5. PARACETAMOL [Suspect]
     Dosage: 500 MG, UNK
  6. LITHIUM CARBONATE [Suspect]
     Dosage: 2 DF, UNK
  7. SEROQUEL [Suspect]
     Dosage: 2 DF, UNK
  8. LEVOTHYROXINE [Suspect]
     Dosage: 1 DF, QD
  9. LEVOTHYROXINE [Suspect]
     Dosage: 100 UG, UNK
  10. ASPIRIN [Suspect]
     Dosage: 1 DF, UNK

REACTIONS (8)
  - Radial nerve palsy [Unknown]
  - Cough [Unknown]
  - Tardive dyskinesia [Unknown]
  - Balance disorder [Unknown]
  - Disturbance in attention [Unknown]
  - Swollen tongue [Unknown]
  - Salivary hypersecretion [Unknown]
  - Tremor [Unknown]
